FAERS Safety Report 7066072-3 (Version None)
Quarter: 2010Q4

REPORT INFORMATION
  Report Type: 
  Country: None (occurrence: None)
  Receive Date: 20101027
  Receipt Date: 20100611
  Transmission Date: 20110411
  Serious: Yes (Other)
  Sender: FDA-Public Use
  Company Number: HQWYE358922JUL04

PATIENT
  Sex: Female

DRUGS (6)
  1. PREMPRO [Suspect]
  2. ESTRACE [Suspect]
  3. DEPO-ESTRADIOL [Suspect]
  4. ESTRADIOL CYPIONATE [Suspect]
  5. ESTROGEN NOS [Suspect]
  6. PREMARIN [Suspect]

REACTIONS (4)
  - ARTHRITIS [None]
  - CARDIAC DISORDER [None]
  - CEREBROVASCULAR ACCIDENT [None]
  - TENSION [None]
